FAERS Safety Report 22166174 (Version 1)
Quarter: 2023Q1

REPORT INFORMATION
  Report Type: Spontaneous
  Country: US (occurrence: None)
  Receive Date: 20230331
  Receipt Date: 20230331
  Transmission Date: 20230417
  Serious: Yes (unspecified)
  Sender: FDA-Public Use
  Company Number: None

PATIENT
  Age: 95 Year
  Sex: Female
  Weight: 48.6 kg

DRUGS (8)
  1. MELATONIN [Suspect]
     Active Substance: MELATONIN
     Indication: Product used for unknown indication
     Dosage: FREQUENCY : AT BEDTIME;?
     Route: 048
     Dates: start: 20230325, end: 20230329
  2. ABILIFY [Suspect]
     Active Substance: ARIPIPRAZOLE
  3. Aripiprazole(Abilify) 2mg PO QD [Concomitant]
  4. Memantine 10mg PO BID [Concomitant]
  5. Eye MVit 1 PO BID [Concomitant]
  6. Vit B-12 1 tab PO QD [Concomitant]
  7. Vit D3  2 tabs PO BID [Concomitant]
  8. TYLENOL 325mg 2 tabs PO PRN [Concomitant]

REACTIONS (9)
  - Stress fracture [None]
  - Radius fracture [None]
  - Hallucination [None]
  - Disorientation [None]
  - Refusal of treatment by relative [None]
  - Confusional state [None]
  - Speech disorder [None]
  - Somnolence [None]
  - Contraindicated product administered [None]

NARRATIVE: CASE EVENT DATE: 20230325
